FAERS Safety Report 5467247-7 (Version None)
Quarter: 2007Q3

REPORT INFORMATION
  Report Type: 
  Country: None (occurrence: None)
  Receive Date: 20070925
  Receipt Date: 20070914
  Transmission Date: 20080115
  Serious: Yes (Other)
  Sender: FDA-Public Use
  Company Number: PHHO2007MX15334

PATIENT
  Age: 80 Year
  Sex: Male

DRUGS (8)
  1. STALEVO 100 [Suspect]
     Indication: PARKINSON'S DISEASE
     Dosage: 3 TABLETS (50/12.5/200/DAY
  2. PARLODEL [Concomitant]
     Dosage: 2.5 AND 5MG
  3. NEXIUM [Concomitant]
  4. PLAVIX [Concomitant]
  5. SIFROL [Concomitant]
  6. TAMBOCOR [Concomitant]
  7. LIPITOR [Concomitant]
  8. ASPIRIN [Concomitant]

REACTIONS (2)
  - BLINDNESS [None]
  - DEAFNESS [None]
